FAERS Safety Report 21602366 (Version 4)
Quarter: 2023Q1

REPORT INFORMATION
  Report Type: Spontaneous
  Country: US (occurrence: US)
  Receive Date: 20221116
  Receipt Date: 20230112
  Transmission Date: 20230418
  Serious: Yes (Other)
  Sender: FDA-Public Use
  Company Number: US-PFIZER INC-202201300320

PATIENT
  Age: 64 Year
  Sex: Female

DRUGS (1)
  1. LEVOTHYROXINE SODIUM [Suspect]
     Active Substance: LEVOTHYROXINE SODIUM
     Dosage: UNK

REACTIONS (6)
  - Choking [Unknown]
  - Product substitution issue [Unknown]
  - Malaise [Unknown]
  - Swelling [Unknown]
  - Pain [Unknown]
  - Cough [Unknown]
